FAERS Safety Report 7206927-X (Version None)
Quarter: 2011Q1

REPORT INFORMATION
  Report Type: 
  Country: None (occurrence: None)
  Receive Date: 20110103
  Receipt Date: 20101222
  Transmission Date: 20110831
  Serious: Yes (Other)
  Sender: FDA-Public Use
  Company Number: A0867047A

PATIENT
  Age: 45 Year
  Sex: Male

DRUGS (5)
  1. VICODIN [Concomitant]
  2. AMBIEN [Concomitant]
  3. ATRIPLA [Suspect]
  4. XANAX [Concomitant]
  5. PROMACTA [Suspect]
     Indication: IDIOPATHIC THROMBOCYTOPENIC PURPURA
     Route: 048
     Dates: start: 20100108

REACTIONS (3)
  - SINUSITIS [None]
  - LIVER FUNCTION TEST ABNORMAL [None]
  - LIVER DISORDER [None]
